FAERS Safety Report 21184988 (Version 1)
Quarter: 2022Q3

REPORT INFORMATION
  Report Type: Spontaneous
  Country: RO (occurrence: None)
  Receive Date: 20220806
  Receipt Date: 20220806
  Transmission Date: 20221027
  Serious: Yes (unspecified)
  Sender: FDA-Public Use
  Company Number: None

PATIENT
  Age: 31 Year
  Sex: Male

DRUGS (4)
  1. CIPROFLOXACIN AND DEXAMETHASONE [Suspect]
     Active Substance: CIPROFLOXACIN HYDROCHLORIDE\DEXAMETHASONE
     Indication: Labyrinthitis
     Dosage: OTHER QUANTITY : 1 BOTTLE;?FREQUENCY : TWICE A DAY;?
     Route: 001
     Dates: start: 20220721
  2. AMOXICILLIN [Concomitant]
     Active Substance: AMOXICILLIN
  3. oral diclofenac [Concomitant]
  4. ACETAMINOPHEN [Concomitant]
     Active Substance: ACETAMINOPHEN

REACTIONS (3)
  - Product communication issue [None]
  - Wrong technique in product usage process [None]
  - Therapy non-responder [None]

NARRATIVE: CASE EVENT DATE: 20220805
